FAERS Safety Report 25854229 (Version 1)
Quarter: 2025Q3

REPORT INFORMATION
  Report Type: Spontaneous
  Country: US (occurrence: US)
  Receive Date: 20250926
  Receipt Date: 20250926
  Transmission Date: 20251021
  Serious: No
  Sender: PURDUE
  Company Number: US-PURDUE PHARMA-USA-2025-0320910

PATIENT
  Sex: Male

DRUGS (1)
  1. DILAUDID [Suspect]
     Active Substance: HYDROMORPHONE HYDROCHLORIDE
     Indication: Diverticulitis
     Route: 048
     Dates: start: 2010

REACTIONS (3)
  - Feeling abnormal [Unknown]
  - Impaired quality of life [Unknown]
  - Product use in unapproved indication [Unknown]
